FAERS Safety Report 23088291 (Version 1)
Quarter: 2023Q4

REPORT INFORMATION
  Report Type: Spontaneous
  Country: CH (occurrence: CH)
  Receive Date: 20231020
  Receipt Date: 20231020
  Transmission Date: 20240110
  Serious: Yes (Hospitalization, Other)
  Sender: FDA-Public Use
  Company Number: None

PATIENT
  Age: 68 Year
  Sex: Male
  Weight: 66.5 kg

DRUGS (10)
  1. DARATUMUMAB [Suspect]
     Active Substance: DARATUMUMAB
     Indication: Plasma cell myeloma
     Dosage: GIVEN3X IN TOTAL:  ON D1 20230830, D8 20230908 AND D15 20230913  ; CYCLICAL;; ROUTE:058
     Route: 058
     Dates: start: 20230830, end: 20230913
  2. KYPROLIS [Suspect]
     Active Substance: CARFILZOMIB
     Indication: Plasma cell myeloma
     Dosage: ONLY GIVEN TWICE IN TOTAL: D1 20230830 AND D8 20230908 ; CYCLICAL
     Route: 041
     Dates: start: 20230830, end: 20230908
  3. BACTRIM [Suspect]
     Active Substance: SULFAMETHOXAZOLE\TRIMETHOPRIM
     Indication: Product used for unknown indication
     Dosage: 800/160MG ON MONDAYS, WEDNESDAYS AND FRIDAYS ; CYCLICAL,  ROUTE:048
     Route: 048
     Dates: start: 20230829, end: 20230922
  4. DEXAMETHASONE [Concomitant]
     Active Substance: DEXAMETHASONE
     Indication: Plasma cell myeloma
     Dosage: CYCLICAL ; ROUTE:042
     Route: 042
     Dates: start: 20230830, end: 20230913
  5. EDOXABAN TOSYLATE [Concomitant]
     Active Substance: EDOXABAN TOSYLATE
     Indication: Product used for unknown indication
     Dosage: ROUTE:048
     Route: 048
     Dates: start: 2018, end: 20230922
  6. EDOXABAN TOSYLATE [Concomitant]
     Active Substance: EDOXABAN TOSYLATE
     Route: 048
     Dates: start: 20230930
  7. NALOXONE HYDROCHLORIDE\OXYCODONE HYDROCHLORIDE [Concomitant]
     Active Substance: NALOXONE HYDROCHLORIDE\OXYCODONE HYDROCHLORIDE
     Indication: Product used for unknown indication
     Dosage: 10/5MG; ON-DEMAND MEDICATION, NOT TAKEN IN THE MONTHS BEFORE THE EVENT ; AS NECESSARY; ROUTE:048
     Route: 048
     Dates: start: 2014
  8. DAFALGAN [Concomitant]
     Active Substance: ACETAMINOPHEN
     Indication: Product used for unknown indication
     Dosage: 500MG 2-0-0; ROUTE:048
     Route: 048
     Dates: start: 20230830, end: 20230922
  9. DAFALGAN [Concomitant]
     Active Substance: ACETAMINOPHEN
     Dosage: INTAKE DOCUMENTED ON 20230924 ; AS NECESSARY
     Route: 048
     Dates: start: 20230923
  10. HEPARIN [Concomitant]
     Active Substance: HEPARIN SODIUM
     Indication: Product used for unknown indication
     Dosage: THERAPEUTIC ANTICOAGULANT DOSING, CONTINUOUS INFUSION;  ROUTE:041
     Route: 041
     Dates: start: 20230923, end: 20230930

REACTIONS (3)
  - Angina pectoris [Recovering/Resolving]
  - Thrombocytopenia [Recovering/Resolving]
  - Dyspnoea [Recovering/Resolving]

NARRATIVE: CASE EVENT DATE: 20230913
